FAERS Safety Report 6428371-5 (Version None)
Quarter: 2009Q4

REPORT INFORMATION
  Report Type: 
  Country: None (occurrence: None)
  Receive Date: 20091104
  Receipt Date: 20091104
  Transmission Date: 20100525
  Serious: No
  Sender: FDA-Public Use
  Company Number: None

PATIENT
  Age: 64 Year
  Sex: Male
  Weight: 74.8 kg

DRUGS (2)
  1. DOCETAXEL [Suspect]
     Indication: ADJUVANT THERAPY
     Dosage: 140 MG OTHER IV
     Route: 042
     Dates: start: 20090219, end: 20090219
  2. DOCETAXEL [Suspect]
     Indication: PROSTATE CANCER
     Dosage: 140 MG OTHER IV
     Route: 042
     Dates: start: 20090219, end: 20090219

REACTIONS (3)
  - BRONCHOSPASM [None]
  - FLUSHING [None]
  - HYPERTENSION [None]
